FAERS Safety Report 13025597 (Version 1)
Quarter: 2016Q4

REPORT INFORMATION
  Report Type: Spontaneous
  Country: FR (occurrence: FR)
  Receive Date: 20161214
  Receipt Date: 20161214
  Transmission Date: 20170207
  Serious: Yes (Hospitalization, Other)
  Sender: FDA-Public Use
  Company Number: FR-APOTEX-2016AP015670

PATIENT
  Age: 77 Year
  Sex: Female

DRUGS (9)
  1. SELOKEN TABLET [Concomitant]
     Dosage: 50 MG, QD
     Route: 048
  2. STILNOX [Concomitant]
     Active Substance: ZOLPIDEM TARTRATE
     Dosage: 10 MG, QD
     Route: 048
  3. PAXIL [Suspect]
     Active Substance: PAROXETINE HYDROCHLORIDE
     Indication: DEPRESSION
     Dosage: UNK
     Route: 048
     Dates: start: 20160803, end: 20161028
  4. LASILIX                            /00032601/ [Concomitant]
     Active Substance: FUROSEMIDE
     Indication: PRODUCT USED FOR UNKNOWN INDICATION
     Dosage: 40 MG, QD
     Route: 048
     Dates: end: 20161027
  5. SPECIAFOLDINE TABLET [Concomitant]
     Dosage: 5 MG, BID
     Route: 048
     Dates: end: 20161027
  6. CORVASAL TABLET [Concomitant]
     Dosage: 2 MG, TID
     Route: 048
  7. EUPANTOL GASTRO-RESISTANT CAPSULE [Concomitant]
     Dosage: 40 MG, QD
     Route: 048
  8. ZOCOR [Suspect]
     Active Substance: SIMVASTATIN
     Indication: PRODUCT USED FOR UNKNOWN INDICATION
     Dosage: 40 MG, QD
     Route: 048
     Dates: start: 1996, end: 20161028
  9. ELIQUIS FILM-COATED TABLET [Concomitant]
     Dosage: 5 MG, BID
     Route: 048
     Dates: end: 201610

REACTIONS (1)
  - Rhabdomyolysis [Recovered/Resolved]

NARRATIVE: CASE EVENT DATE: 201608
